FAERS Safety Report 9402954 (Version 1)
Quarter: 2013Q3

REPORT INFORMATION
  Report Type: Spontaneous
  Country: US (occurrence: US)
  Receive Date: 20130716
  Receipt Date: 20130716
  Transmission Date: 20140515
  Serious: Yes (Other)
  Sender: FDA-Public Use
  Company Number: US-JNJFOC-20130707654

PATIENT
  Sex: Male

DRUGS (2)
  1. INVOKANA [Suspect]
     Indication: TYPE 2 DIABETES MELLITUS
     Route: 048
  2. ARB CALCIUM CHANNEL BLOCKER COMBINATION [Interacting]
     Indication: HYPERTENSION

REACTIONS (4)
  - Blood pressure decreased [Unknown]
  - Drug interaction [Unknown]
  - Malaise [Unknown]
  - Asthenia [Unknown]
